FAERS Safety Report 18199310 (Version 1)
Quarter: 2020Q3

REPORT INFORMATION
  Report Type: Report from Study
  Country: LB (occurrence: LB)
  Receive Date: 20200826
  Receipt Date: 20200826
  Transmission Date: 20201103
  Serious: Yes (Hospitalization)
  Sender: FDA-Public Use
  Company Number: LB-AMGEN-LBNSL2020094237

PATIENT
  Age: 54 Year
  Sex: Female

DRUGS (1)
  1. NEULASTIM [Suspect]
     Active Substance: PEGFILGRASTIM
     Indication: BREAST CANCER
     Dosage: 6 MILLIGRAM (6MG/0.6 ML, 1 INJECTION) ^ONCE^
     Route: 065

REACTIONS (7)
  - Immune system disorder [Unknown]
  - Bone pain [Not Recovered/Not Resolved]
  - C-reactive protein increased [Unknown]
  - Off label use [Unknown]
  - Pyrexia [Unknown]
  - Blood creatinine increased [Unknown]
  - Hypotension [Unknown]
